FAERS Safety Report 6248266-X (Version None)
Quarter: 2009Q2

REPORT INFORMATION
  Report Type: 
  Country: None (occurrence: None)
  Receive Date: 20090629
  Receipt Date: 20090615
  Transmission Date: 20091009
  Serious: Yes (Hospitalization, Other)
  Sender: FDA-Public Use
  Company Number: PHHY2009BR24187

PATIENT
  Sex: Female
  Weight: 59 kg

DRUGS (8)
  1. EXELON [Suspect]
     Indication: DEMENTIA ALZHEIMER'S TYPE
     Dosage: 1.5 MG, BID
     Route: 048
     Dates: start: 20090425
  2. EXELON [Suspect]
     Dosage: 1.5MG, 1 CAPSULE IN MORNING AND TWO AT NIGHT
     Route: 048
  3. EXELON [Suspect]
     Dosage: 1.5 MG, 2 DF, BID
     Route: 048
  4. EXELON [Suspect]
     Dosage: 1.5 MG, 3 DF, BID
     Route: 048
  5. EXELON [Suspect]
     Dosage: 4.5 MG, 2 CAPSULE IN MORNING AND 3 CAPSULE AT NIGHT
     Route: 048
  6. CORDAREX [Concomitant]
     Indication: HYPERTENSION
     Dosage: 5 MG, QD
     Route: 048
     Dates: start: 19850101
  7. TOFRANIL [Concomitant]
     Indication: DEPRESSION
     Dosage: 25 MG, QHS
     Route: 048
     Dates: start: 20060101
  8. PURAN T4 [Concomitant]
     Indication: THYROID DISORDER
     Dosage: UNK
     Dates: start: 20050101

REACTIONS (11)
  - ABDOMINAL PAIN UPPER [None]
  - AGITATION [None]
  - ANAEMIA [None]
  - ANOREXIA [None]
  - APATHY [None]
  - DYSPNOEA [None]
  - GASTRIC LAVAGE [None]
  - MYCOTIC ALLERGY [None]
  - NAUSEA [None]
  - SOMNOLENCE [None]
  - VOMITING [None]
